FAERS Safety Report 9513565 (Version 1)
Quarter: 2013Q3

REPORT INFORMATION
  Report Type: Spontaneous
  Country: DK (occurrence: DK)
  Receive Date: 20130910
  Receipt Date: 20130910
  Transmission Date: 20140515
  Serious: Yes (Life-Threatening, Hospitalization)
  Sender: FDA-Public Use
  Company Number: DK-ROXANE LABORATORIES, INC.-2013-RO-01491RO

PATIENT
  Age: 40 Year
  Sex: Male

DRUGS (2)
  1. LITHIUM CARBONATE [Suspect]
  2. NORTRIPTYLINE [Suspect]

REACTIONS (4)
  - Toxicity to various agents [Recovered/Resolved]
  - Suicide attempt [Recovered/Resolved]
  - Haemodynamic instability [Recovered/Resolved]
  - Cardiac arrest [Recovered/Resolved]
